FAERS Safety Report 24152374 (Version 1)
Quarter: 2024Q3

REPORT INFORMATION
  Report Type: Spontaneous
  Country: US (occurrence: US)
  Receive Date: 20240730
  Receipt Date: 20240730
  Transmission Date: 20241017
  Serious: No
  Sender: BAUSCH AND LOMB
  Company Number: US-BAUSCH-BL-2024-011569

PATIENT
  Sex: Male

DRUGS (2)
  1. PIMECROLIMUS [Suspect]
     Active Substance: PIMECROLIMUS
     Indication: Product used for unknown indication
     Dosage: APPLY TWICE DAILY TO EYELIDS
     Route: 061
  2. FLUOCINOLONE [Suspect]
     Active Substance: FLUOCINOLONE
     Indication: Product used for unknown indication
     Route: 061

REACTIONS (1)
  - Treatment failure [Unknown]
